FAERS Safety Report 16310778 (Version 1)
Quarter: 2019Q2

REPORT INFORMATION
  Report Type: Spontaneous
  Country: US (occurrence: US)
  Receive Date: 20190513
  Receipt Date: 20190513
  Transmission Date: 20190711
  Serious: Yes (Hospitalization)
  Sender: FDA-Public Use
  Company Number: None

PATIENT
  Age: 30 Year
  Sex: Female
  Weight: 90 kg

DRUGS (3)
  1. DIVALPROEX [Concomitant]
     Active Substance: DIVALPROEX SODIUM
  2. TEMAZEPAM. [Concomitant]
     Active Substance: TEMAZEPAM
  3. FLUPHENAZINE 5MG [Suspect]
     Active Substance: FLUPHENAZINE
     Indication: BIPOLAR DISORDER
     Dates: start: 20190422, end: 20190501

REACTIONS (4)
  - Impaired driving ability [None]
  - Somnolence [None]
  - Loss of personal independence in daily activities [None]
  - Blindness [None]

NARRATIVE: CASE EVENT DATE: 20190422
